FAERS Safety Report 18884662 (Version 2)
Quarter: 2021Q2

REPORT INFORMATION
  Report Type: Spontaneous
  Country: US (occurrence: US)
  Receive Date: 20210211
  Receipt Date: 20210412
  Transmission Date: 20210717
  Serious: No
  Sender: FDA-Public Use
  Company Number: US-TOLMAR, INC.-21US025269

PATIENT
  Age: 7 Decade
  Sex: Female

DRUGS (1)
  1. CLOBETASOL PROPIONATE. [Suspect]
     Active Substance: CLOBETASOL PROPIONATE
     Indication: SKIN DISORDER
     Dosage: UNK, BID
     Route: 061
     Dates: start: 20210122

REACTIONS (2)
  - Product dose omission issue [Not Recovered/Not Resolved]
  - Product container issue [Not Recovered/Not Resolved]

NARRATIVE: CASE EVENT DATE: 20210131
